FAERS Safety Report 22747566 (Version 2)
Quarter: 2023Q4

REPORT INFORMATION
  Report Type: Report from Study
  Country: US (occurrence: US)
  Receive Date: 20230725
  Receipt Date: 20231012
  Transmission Date: 20240110
  Serious: Yes (Other)
  Sender: FDA-Public Use
  Company Number: US-UCBSA-2023036106

PATIENT
  Age: 1 Year
  Sex: Male

DRUGS (4)
  1. FINTEPLA [Suspect]
     Active Substance: FENFLURAMINE
     Indication: Epilepsy
     Dosage: 1.3 MILLILITER, 2X/DAY (BID)
     Dates: start: 20221103
  2. FINTEPLA [Suspect]
     Active Substance: FENFLURAMINE
     Indication: Off label use
     Dosage: 1.1 MILLILITER, 2X/DAY (BID)
     Dates: start: 20221109
  3. FINTEPLA [Suspect]
     Active Substance: FENFLURAMINE
     Dosage: 1.4 ML QAM + 1.5 ML QPM
  4. STIRIPENTOL [Concomitant]
     Active Substance: STIRIPENTOL
     Indication: Product used for unknown indication
     Dosage: UNK

REACTIONS (5)
  - Seizure [Not Recovered/Not Resolved]
  - Pulmonary mass [Unknown]
  - Echocardiogram abnormal [Not Recovered/Not Resolved]
  - Iron deficiency [Not Recovered/Not Resolved]
  - Off label use [Unknown]

NARRATIVE: CASE EVENT DATE: 20221103
